FAERS Safety Report 21760318 (Version 1)
Quarter: 2022Q4

REPORT INFORMATION
  Report Type: Spontaneous
  Country: None (occurrence: PL)
  Receive Date: 20221221
  Receipt Date: 20221221
  Transmission Date: 20230113
  Serious: Yes (Other)
  Sender: FDA-Public Use
  Company Number: PL-Therakind Limited-2136036

PATIENT
  Age: 21 Year
  Sex: Male

DRUGS (3)
  1. METHOTREXATE [Suspect]
     Active Substance: METHOTREXATE
     Indication: Psoriasis
  2. CYCLOSPORINE [Suspect]
     Active Substance: CYCLOSPORINE
  3. COSENTYX [Suspect]
     Active Substance: SECUKINUMAB

REACTIONS (7)
  - Hypercholesterolaemia [Unknown]
  - Drug ineffective [Recovered/Resolved]
  - Gastrointestinal haemorrhage [Unknown]
  - Blood pressure abnormal [Unknown]
  - Psoriasis [Recovering/Resolving]
  - Weight increased [Unknown]
  - Hepatic enzyme abnormal [Unknown]
